FAERS Safety Report 23215716 (Version 2)
Quarter: 2023Q4

REPORT INFORMATION
  Report Type: Spontaneous
  Country: FI (occurrence: FI)
  Receive Date: 20231122
  Receipt Date: 20231209
  Transmission Date: 20240109
  Serious: No
  Sender: FDA-Public Use
  Company Number: FI-UCBSA-2023053565

PATIENT
  Sex: Female

DRUGS (1)
  1. NEUPRO [Suspect]
     Active Substance: ROTIGOTINE
     Indication: Product used for unknown indication
     Dosage: 2 MILLIGRAM
     Route: 062
     Dates: start: 202307

REACTIONS (4)
  - Product adhesion issue [Unknown]
  - Inappropriate schedule of product administration [Unknown]
  - Wrong technique in product usage process [Unknown]
  - Product physical issue [Unknown]

NARRATIVE: CASE EVENT DATE: 20230101
